FAERS Safety Report 9128296 (Version 1)
Quarter: 2013Q1

REPORT INFORMATION
  Report Type: Report from Study
  Country: HU (occurrence: HU)
  Receive Date: 20130125
  Receipt Date: 20130125
  Transmission Date: 20140127
  Serious: Yes (Other)
  Sender: FDA-Public Use
  Company Number: HU-ROCHE-1180296

PATIENT
  Sex: 0

DRUGS (6)
  1. BEVACIZUMAB [Suspect]
     Indication: COLORECTAL CANCER METASTATIC
     Route: 065
  2. IRINOTECAN [Suspect]
     Indication: COLORECTAL CANCER METASTATIC
     Route: 042
  3. LEUCOVORIN [Suspect]
     Indication: COLORECTAL CANCER METASTATIC
     Dosage: LOW DOSE
     Route: 042
  4. LEUCOVORIN [Suspect]
     Dosage: HIGH DOSE
     Route: 042
  5. 5-FU [Suspect]
     Indication: COLORECTAL CANCER METASTATIC
     Route: 040
  6. 5-FU [Suspect]
     Dosage: FOLLOWED BY A 46-H INFUSION
     Route: 042

REACTIONS (17)
  - Hypertension [Unknown]
  - Neutropenia [Unknown]
  - Diarrhoea [Unknown]
  - Vomiting [Unknown]
  - Nausea [Unknown]
  - Mucosal inflammation [Unknown]
  - Palmar-plantar erythrodysaesthesia syndrome [Unknown]
  - Fatigue [Unknown]
  - Renal impairment [Unknown]
  - Proteinuria [Unknown]
  - Febrile neutropenia [Unknown]
  - Cardiotoxicity [Unknown]
  - Ileus [Unknown]
  - Haemoglobin abnormal [Unknown]
  - Embolism venous [Unknown]
  - Haemorrhage [Unknown]
  - Alopecia [Unknown]
